FAERS Safety Report 8986548 (Version 3)
Quarter: 2013Q3

REPORT INFORMATION
  Report Type: Spontaneous
  Country: US (occurrence: US)
  Receive Date: 20121226
  Receipt Date: 20130821
  Transmission Date: 20140515
  Serious: Yes (Other)
  Sender: FDA-Public Use
  Company Number: US-ROCHE-1157493

PATIENT
  Sex: Female

DRUGS (6)
  1. XOLAIR [Suspect]
     Indication: ASTHMA
     Dosage: DIVIDED IN THREE DOSES
     Route: 058
  2. XOLAIR [Suspect]
     Indication: ASTHMA
  3. METFORMIN [Concomitant]
     Indication: GLUCOSE TOLERANCE IMPAIRED
     Route: 048
  4. ARMOUR THYROID [Concomitant]
     Indication: HYPOTHYROIDISM
     Route: 048
  5. PROGESTERONE [Concomitant]
     Indication: HORMONE LEVEL ABNORMAL
     Route: 061
  6. SPIRONOLACTONE [Concomitant]
     Indication: ALOPECIA
     Route: 048

REACTIONS (7)
  - Ectopic pregnancy [Unknown]
  - Abortion spontaneous [Unknown]
  - Exposure during pregnancy [Unknown]
  - Emotional distress [Not Recovered/Not Resolved]
  - Eczema [Recovering/Resolving]
  - Skin exfoliation [Recovering/Resolving]
  - Haemorrhage [Recovering/Resolving]
